FAERS Safety Report 10641148 (Version 4)
Quarter: 2015Q1

REPORT INFORMATION
  Report Type: Spontaneous
  Country: DE (occurrence: None)
  Receive Date: 20141208
  Receipt Date: 20150218
  Transmission Date: 20150720
  Serious: Yes (Death, Other)
  Sender: FDA-Public Use
  Company Number: 2014DE010477

PATIENT
  Age: 71 Year
  Sex: Male
  Weight: 93 kg

DRUGS (10)
  1. ENZALUTAMIDE [Suspect]
     Active Substance: ENZALUTAMIDE
     Indication: PROSTATE CANCER
     Route: 048
     Dates: start: 20100802
  2. PREDNISOLON  (PREDNISOLONE) [Concomitant]
  3. RANITIDIN (RANITIDINE HYDROCHLORIDE) [Concomitant]
  4. ELIGARD [Suspect]
     Active Substance: LEUPROLIDE ACETATE
     Indication: PRODUCT USED FOR UNKNOWN INDICATION
     Dates: start: 20100519
  5. IBUPROFEN (IBUPROFEN) [Concomitant]
     Active Substance: IBUPROFEN
  6. ZOMETA [Concomitant]
     Active Substance: ZOLEDRONIC ACID
  7. AMLODIPIN (AMLODIPINE) [Concomitant]
  8. TAMSULOSIN (TAMSULOSIN) [Suspect]
     Active Substance: TAMSULOSIN
     Dosage: UNK , UNKNOWN
     Dates: start: 200910
  9. ASS (ACETYLSALICYLIC ACID) [Concomitant]
  10. DORZOLAMIDE (DORZOLAMIDE) [Concomitant]

REACTIONS (26)
  - Petechiae [None]
  - Renal failure [None]
  - Cerebral calcification [None]
  - Bacterial infection [None]
  - Left ventricular hypertrophy [None]
  - Visual acuity reduced [None]
  - Hepatosplenomegaly [None]
  - Septic embolus [None]
  - Subclavian vein thrombosis [None]
  - Tumour lysis syndrome [None]
  - QRS axis abnormal [None]
  - Procalcitonin increased [None]
  - Haemorrhage [None]
  - Mitral valve incompetence [None]
  - Endocarditis [None]
  - Orthostatic intolerance [None]
  - Hepatic steatosis [None]
  - Gastritis [None]
  - Diverticulum [None]
  - Splenic infarction [None]
  - Disseminated intravascular coagulation [None]
  - Acute lymphocytic leukaemia [None]
  - Bundle branch block left [None]
  - Hypoacusis [None]
  - Pleural effusion [None]
  - Atelectasis [None]

NARRATIVE: CASE EVENT DATE: 20101216
